FAERS Safety Report 10541680 (Version 1)
Quarter: 2014Q4

REPORT INFORMATION
  Report Type: Spontaneous
  Country: US (occurrence: US)
  Receive Date: 20141024
  Receipt Date: 20141024
  Transmission Date: 20150529
  Serious: No
  Sender: FDA-Public Use
  Company Number: US-ALLERGAN-1404097US

PATIENT
  Age: 84 Year
  Sex: Male

DRUGS (1)
  1. ALPHAGAN P [Suspect]
     Active Substance: BRIMONIDINE TARTRATE
     Indication: GLAUCOMA
     Dosage: 2 GTT, SINGLE
     Route: 047
     Dates: start: 20140302, end: 20140302

REACTIONS (4)
  - Eye irritation [Recovering/Resolving]
  - Erythema [Recovering/Resolving]
  - Vision blurred [Recovering/Resolving]
  - Ocular hyperaemia [Recovering/Resolving]

NARRATIVE: CASE EVENT DATE: 20140302
